FAERS Safety Report 13370931 (Version 1)
Quarter: 2017Q1

REPORT INFORMATION
  Report Type: Spontaneous
  Country: CA (occurrence: CA)
  Receive Date: 20170324
  Receipt Date: 20170324
  Transmission Date: 20170429
  Serious: Yes (Hospitalization)
  Sender: FDA-Public Use
  Company Number: CA-JNJFOC-20170324374

PATIENT
  Age: 92 Year
  Sex: Female
  Weight: 68 kg

DRUGS (4)
  1. PANTOPRAZOLE [Concomitant]
     Active Substance: PANTOPRAZOLE SODIUM
     Route: 065
  2. METOCLOPRAMIDE. [Concomitant]
     Active Substance: METOCLOPRAMIDE
     Route: 065
  3. XARELTO [Suspect]
     Active Substance: RIVAROXABAN
     Indication: ATRIAL FIBRILLATION
     Route: 048
  4. EURO-FERROUS SULFATE [Concomitant]
     Route: 065

REACTIONS (4)
  - Rectal haemorrhage [Recovering/Resolving]
  - International normalised ratio abnormal [Recovering/Resolving]
  - Activated partial thromboplastin time abnormal [Recovering/Resolving]
  - Haemoglobin decreased [Recovering/Resolving]
